FAERS Safety Report 10831242 (Version 1)
Quarter: 2015Q1

REPORT INFORMATION
  Report Type: Report from Study
  Country: US (occurrence: US)
  Receive Date: 20150219
  Receipt Date: 20150219
  Transmission Date: 20150721
  Serious: No
  Sender: FDA-Public Use
  Company Number: US-ABBVIE-14P-163-1192329-00

PATIENT
  Age: 37 Year
  Sex: Male

DRUGS (4)
  1. COLAZOL [Concomitant]
     Indication: COLITIS ULCERATIVE
  2. HUMIRA [Suspect]
     Active Substance: ADALIMUMAB
     Dates: start: 20140116
  3. DICYCLOMINE [Concomitant]
     Active Substance: DICYCLOMINE HYDROCHLORIDE
     Indication: ABDOMINAL PAIN
  4. HUMIRA [Suspect]
     Active Substance: ADALIMUMAB
     Indication: COLITIS ULCERATIVE
     Dates: start: 20140115, end: 20140115

REACTIONS (2)
  - Injection site haemorrhage [Recovered/Resolved]
  - Application site bruise [Recovered/Resolved]

NARRATIVE: CASE EVENT DATE: 20140116
